FAERS Safety Report 7780889-9 (Version None)
Quarter: 2011Q3

REPORT INFORMATION
  Report Type: 
  Country: None (occurrence: None)
  Receive Date: 20110923
  Receipt Date: 20110907
  Transmission Date: 20111222
  Serious: Yes (Other)
  Sender: FDA-Public Use
  Company Number: JPI-P-017049

PATIENT
  Age: 28 Year
  Sex: Female
  Weight: 95.2554 kg

DRUGS (4)
  1. XYREM [Suspect]
     Indication: SOMNOLENCE
     Dosage: (2 GM FIRST DOSE/4 GM SECOND DOSE), ORAL   6 GM (3 GM, 2 IN 1 D), ORAL
     Route: 048
     Dates: start: 20110101, end: 20110701
  2. XYREM [Suspect]
     Indication: SOMNOLENCE
     Dosage: (2 GM FIRST DOSE/4 GM SECOND DOSE), ORAL   6 GM (3 GM, 2 IN 1 D), ORAL
     Route: 048
     Dates: start: 20110513, end: 20110101
  3. PREGABALIN [Concomitant]
  4. TOPIRAMATE [Concomitant]

REACTIONS (9)
  - GALLBLADDER DISORDER [None]
  - FEELING ABNORMAL [None]
  - GALLBLADDER CHOLESTEROLOSIS [None]
  - ABDOMINAL PAIN UPPER [None]
  - GASTROINTESTINAL MOTILITY DISORDER [None]
  - CHOLELITHIASIS [None]
  - DEHYDRATION [None]
  - BACK PAIN [None]
  - VOMITING [None]
